FAERS Safety Report 11825504 (Version 4)
Quarter: 2016Q2

REPORT INFORMATION
  Report Type: Spontaneous
  Country: GB (occurrence: GB)
  Receive Date: 20151211
  Receipt Date: 20160528
  Transmission Date: 20160815
  Serious: Yes (Death, Other)
  Sender: FDA-Public Use
  Company Number: GB-AMGEN-GBRSP2015124593

PATIENT
  Age: 48 Year
  Sex: Female

DRUGS (8)
  1. PALONOSETRON [Concomitant]
     Active Substance: PALONOSETRON
     Dosage: UNK
  2. CYCLOPHOSPHAMIDE. [Concomitant]
     Active Substance: CYCLOPHOSPHAMIDE
     Dosage: UNK
  3. DOCUSATE [Suspect]
     Active Substance: DOCUSATE
     Indication: CONSTIPATION
     Dosage: UNK
     Route: 065
  4. METHOTREXATE [Concomitant]
     Active Substance: METHOTREXATE
     Dosage: UNK
  5. NEULASTA [Suspect]
     Active Substance: PEGFILGRASTIM
     Indication: PRODUCT USED FOR UNKNOWN INDICATION
     Dosage: UNK
     Route: 065
  6. FLUOROURACIL. [Concomitant]
     Active Substance: FLUOROURACIL
     Dosage: UNK
  7. FUROSEMIDE. [Concomitant]
     Active Substance: FUROSEMIDE
     Dosage: UNK
  8. DEXAMETHASONE. [Concomitant]
     Active Substance: DEXAMETHASONE
     Dosage: UNK

REACTIONS (21)
  - Alopecia [Unknown]
  - Diarrhoea [Recovered/Resolved]
  - Anaemia [Unknown]
  - Adverse reaction [Unknown]
  - Decreased appetite [Unknown]
  - Nausea [Unknown]
  - Spinal cord compression [Unknown]
  - Neuropathy peripheral [Unknown]
  - Balance disorder [Unknown]
  - Fatigue [Unknown]
  - Dyspnoea [Unknown]
  - Death [Fatal]
  - Depressed mood [Unknown]
  - Limb discomfort [Unknown]
  - Constipation [Unknown]
  - Neoplasm malignant [Unknown]
  - Peripheral swelling [Unknown]
  - Pain [Unknown]
  - Mobility decreased [Unknown]
  - Contusion [Unknown]
  - Hypoaesthesia [Unknown]

NARRATIVE: CASE EVENT DATE: 2015
